FAERS Safety Report 22908429 (Version 3)
Quarter: 2024Q1

REPORT INFORMATION
  Report Type: Spontaneous
  Country: US (occurrence: US)
  Receive Date: 20230905
  Receipt Date: 20240126
  Transmission Date: 20240410
  Serious: No
  Sender: FDA-Public Use
  Company Number: US-PFIZER INC-PV202300149543

PATIENT
  Age: 69 Year
  Sex: Female

DRUGS (1)
  1. INLYTA [Suspect]
     Active Substance: AXITINIB
     Dosage: 5 MG
     Dates: end: 202309

REACTIONS (7)
  - Arthralgia [Recovering/Resolving]
  - Gastrointestinal pain [Recovering/Resolving]
  - Ear disorder [Unknown]
  - Liver disorder [Unknown]
  - Thyroid disorder [Unknown]
  - Hypertension [Not Recovered/Not Resolved]
  - Proteinuria [Unknown]
